FAERS Safety Report 5947356-6 (Version None)
Quarter: 2008Q4

REPORT INFORMATION
  Report Type: 
  Country: None (occurrence: None)
  Receive Date: 20081110
  Receipt Date: 20080606
  Transmission Date: 20090506
  Serious: Yes (Other)
  Sender: FDA-Public Use
  Company Number: US-PFIZER INC-2008048968

PATIENT
  Sex: Male
  Weight: 81.6 kg

DRUGS (7)
  1. CHANTIX [Suspect]
     Indication: SMOKING CESSATION THERAPY
     Route: 048
     Dates: start: 20080429
  2. MARIJUANA [Interacting]
  3. ALPRAZOLAM [Concomitant]
  4. AVANDARYL [Concomitant]
     Indication: DIABETES MELLITUS
  5. COREG [Concomitant]
  6. ACETYLSALICYLIC ACID SRT [Concomitant]
  7. FISH OIL [Concomitant]

REACTIONS (21)
  - ABDOMINAL DISTENSION [None]
  - ABNORMAL DREAMS [None]
  - AMNESIA [None]
  - ANXIETY [None]
  - BALANCE DISORDER [None]
  - BLOOD GLUCOSE INCREASED [None]
  - CONFUSIONAL STATE [None]
  - CONSTIPATION [None]
  - DEPRESSION [None]
  - DIZZINESS [None]
  - DRUG INTERACTION [None]
  - EXCORIATION [None]
  - FALL [None]
  - FATIGUE [None]
  - FEELING ABNORMAL [None]
  - FLATULENCE [None]
  - INSOMNIA [None]
  - IRRITABILITY [None]
  - MIDDLE INSOMNIA [None]
  - NAUSEA [None]
  - VERTIGO [None]
